FAERS Safety Report 6632708-1 (Version None)
Quarter: 2010Q1

REPORT INFORMATION
  Report Type: 
  Country: None (occurrence: None)
  Receive Date: 20100312
  Receipt Date: 20100310
  Transmission Date: 20100710
  Serious: Yes (Life-Threatening, Other)
  Sender: FDA-Public Use
  Company Number: CHPA2010DE04761

PATIENT
  Age: 10 Month
  Sex: Male

DRUGS (2)
  1. OTRIVEN (NCH) [Suspect]
     Dosage: 1 GTT (2 X 0.006 MG), EACH NOSTRIL, ONCE/SINGLE
     Route: 045
     Dates: start: 20100306, end: 20100306
  2. PARACETAMOL [Suspect]
     Indication: PYREXIA
     Dosage: 125 MG, ONCE/SINGLE
     Route: 054
     Dates: start: 20100306, end: 20100306

REACTIONS (4)
  - BODY TEMPERATURE DECREASED [None]
  - DRUG INTERACTION [None]
  - LOSS OF CONSCIOUSNESS [None]
  - PYREXIA [None]
